FAERS Safety Report 8270630-8 (Version None)
Quarter: 2012Q1

REPORT INFORMATION
  Report Type: 
  Country: None (occurrence: None)
  Receive Date: 20120327
  Receipt Date: 20100316
  Transmission Date: 20120608
  Serious: Yes (Hospitalization)
  Sender: FDA-Public Use
  Company Number: PHEH2010US00883

PATIENT
  Age: 82 Year
  Sex: Female

DRUGS (2)
  1. GLEEVEC [Suspect]
     Indication: GASTROINTESTINAL STROMAL TUMOUR
     Dosage: 400 MG, QD, ORAL, 200 MG DAILY
     Route: 048
     Dates: start: 20091007
  2. GLEEVEC [Suspect]
     Indication: GASTROINTESTINAL STROMAL TUMOUR
     Dosage: 400 MG, QD, ORAL, 200 MG DAILY
     Route: 048
     Dates: start: 20091202

REACTIONS (3)
  - DRUG INEFFECTIVE [None]
  - PULMONARY EMBOLISM [None]
  - PLEURAL EFFUSION [None]
